FAERS Safety Report 12105516 (Version 1)
Quarter: 2016Q1

REPORT INFORMATION
  Report Type: Spontaneous
  Country: MX (occurrence: MX)
  Receive Date: 20160223
  Receipt Date: 20160223
  Transmission Date: 20160526
  Serious: Yes (Hospitalization)
  Sender: FDA-Public Use
  Company Number: MX-PFIZER INC-2016103909

PATIENT
  Sex: Male

DRUGS (1)
  1. MINIPRES [Suspect]
     Active Substance: PRAZOSIN HYDROCHLORIDE

REACTIONS (1)
  - Renal transplant [Not Recovered/Not Resolved]
